FAERS Safety Report 7534912-7 (Version None)
Quarter: 2011Q2

REPORT INFORMATION
  Report Type: 
  Country: None (occurrence: None)
  Receive Date: 20110609
  Receipt Date: 20081107
  Transmission Date: 20111010
  Serious: Yes (Death, Other)
  Sender: FDA-Public Use
  Company Number: PHHY2008CA20141

PATIENT
  Sex: Male

DRUGS (9)
  1. CLOZAPINE [Suspect]
     Indication: SCHIZOPHRENIA
     Dosage: UNK
     Route: 048
     Dates: start: 20050601
  2. HYDROCHLOROTHIAZIDE [Concomitant]
     Dosage: UNKNOWN
  3. OCULAR [Concomitant]
     Dosage: UNKNOWN
  4. SENOKOT [Concomitant]
     Dosage: UNKNOWN
  5. ACCUPRIL [Concomitant]
     Dosage: UNKNOWN
  6. FLURAZEPAM [Concomitant]
     Dosage: UNKNOWN
  7. COLACE [Concomitant]
     Dosage: UNKNOWN
  8. FENOFIBRATE [Concomitant]
     Dosage: UNKNIOWN
  9. FLUVOXAMINE MALEATE [Concomitant]
     Dosage: UNKNOWN

REACTIONS (8)
  - LUNG INFILTRATION [None]
  - PULMONARY MASS [None]
  - LUNG ADENOCARCINOMA [None]
  - DIAPHRAGMATIC PARALYSIS [None]
  - DYSPNOEA [None]
  - OXYGEN SATURATION DECREASED [None]
  - BENIGN NEOPLASM OF ADRENAL GLAND [None]
  - LYMPHANGITIS [None]
